FAERS Safety Report 16970935 (Version 1)
Quarter: 2019Q4

REPORT INFORMATION
  Report Type: Spontaneous
  Country: US (occurrence: US)
  Receive Date: 20191028
  Receipt Date: 20191028
  Transmission Date: 20200122
  Serious: Yes (Hospitalization)
  Sender: FDA-Public Use
  Company Number: None

PATIENT
  Age: 57 Year
  Sex: Female

DRUGS (2)
  1. HYDRALAZINE 50 MG [Concomitant]
     Dates: start: 20191022, end: 20191028
  2. HYDRALAZINE [Suspect]
     Active Substance: HYDRALAZINE HYDROCHLORIDE

REACTIONS (4)
  - Headache [None]
  - Heart rate increased [None]
  - Blood pressure systolic increased [None]
  - Therapy cessation [None]
